FAERS Safety Report 11319250 (Version 1)
Quarter: 2015Q3

REPORT INFORMATION
  Report Type: Spontaneous
  Country: US (occurrence: None)
  Receive Date: 20150727
  Receipt Date: 20150727
  Transmission Date: 20151125
  Serious: Yes (Other)
  Sender: FDA-Public Use
  Company Number: None

PATIENT
  Age: 65 Year
  Sex: Female
  Weight: 72.58 kg

DRUGS (6)
  1. ATOVAQUONE AND PROGUANIL [Suspect]
     Active Substance: ATOVAQUONE\PROGUANIL
     Indication: MALARIA PROPHYLAXIS
     Dosage: 1 ONCE DAILY TAKEN BY MOUTH
     Route: 048
     Dates: start: 20150702, end: 20150712
  2. MULTIVITAMIN [Concomitant]
     Active Substance: VITAMINS
  3. PROZAC [Concomitant]
     Active Substance: FLUOXETINE HYDROCHLORIDE
  4. PROVASTATIN [Concomitant]
  5. PROPANANOL [Concomitant]
  6. CALCIUM [Concomitant]
     Active Substance: CALCIUM

REACTIONS (4)
  - Vomiting [None]
  - Diarrhoea [None]
  - Thinking abnormal [None]
  - Dizziness [None]

NARRATIVE: CASE EVENT DATE: 20150712
